FAERS Safety Report 17193390 (Version 1)
Quarter: 2019Q4

REPORT INFORMATION
  Report Type: Report from Study
  Country: BR (occurrence: BR)
  Receive Date: 20191223
  Receipt Date: 20191223
  Transmission Date: 20200122
  Serious: Yes (Hospitalization, Other)
  Sender: FDA-Public Use
  Company Number: BR-JNJFOC-20191221839

PATIENT
  Age: 18 Year
  Sex: Female
  Weight: 60 kg

DRUGS (1)
  1. REMICADE [Suspect]
     Active Substance: INFLIXIMAB
     Indication: CROHN^S DISEASE
     Route: 042
     Dates: start: 20181107, end: 201906

REACTIONS (8)
  - Fatigue [Unknown]
  - Dyspnoea [Unknown]
  - Arthritis [Unknown]
  - Skin reaction [Unknown]
  - Psoriasis [Recovered/Resolved]
  - Stenosis [Unknown]
  - Candida infection [Unknown]
  - Infection [Unknown]

NARRATIVE: CASE EVENT DATE: 201902
